FAERS Safety Report 4899704-6 (Version None)
Quarter: 2006Q1

REPORT INFORMATION
  Report Type: 
  Country: None (occurrence: None)
  Receive Date: 20060131
  Receipt Date: 20060117
  Transmission Date: 20060701
  Serious: Yes (Death)
  Sender: FDA-Public Use
  Company Number: 221195

PATIENT

DRUGS (6)
  1. AVASTIN [Suspect]
     Indication: NON-SMALL CELL LUNG CANCER
     Dosage: 780 MG, Q2W, INTRAVENOUS
     Route: 042
     Dates: start: 20051213
  2. AVASTIN [Suspect]
     Indication: NON-SMALL CELL LUNG CANCER
     Dosage: 780 MG, Q2W, INTRAVENOUS
     Route: 042
     Dates: start: 20060110
  3. TAXOTERE [Suspect]
     Indication: NON-SMALL CELL LUNG CANCER
     Dosage: 50 MG,50 MG, 50 MG,
     Dates: start: 20051213
  4. TAXOTERE [Suspect]
     Indication: NON-SMALL CELL LUNG CANCER
     Dosage: 50 MG,50 MG, 50 MG,
     Dates: start: 20060108
  5. TAXOTERE [Suspect]
     Indication: NON-SMALL CELL LUNG CANCER
     Dosage: 50 MG,50 MG, 50 MG,
     Dates: start: 20060110
  6. NSAID (NON-STEROIDAL ANTI-INFLAMMATORY DRUG NOS) [Concomitant]

REACTIONS (1)
  - HAEMOPTYSIS [None]
